FAERS Safety Report 8514683-8 (Version None)
Quarter: 2012Q3

REPORT INFORMATION
  Report Type: 
  Country: None (occurrence: None)
  Receive Date: 20120717
  Receipt Date: 20120706
  Transmission Date: 20120928
  Serious: Yes (Death, Life-Threatening, Hospitalization)
  Sender: FDA-Public Use
  Company Number: US-ACTELION-A-NJ2012-64631

PATIENT

DRUGS (2)
  1. COUMADIN [Concomitant]
  2. TRACLEER [Suspect]
     Indication: PULMONARY ARTERIAL HYPERTENSION
     Dosage: UNK
     Route: 048
     Dates: end: 20120628

REACTIONS (12)
  - CARDIAC FAILURE CONGESTIVE [None]
  - FACE INJURY [None]
  - WOUND INFECTION STAPHYLOCOCCAL [None]
  - KIDNEY INFECTION [None]
  - FALL [None]
  - STAPHYLOCOCCAL BACTERAEMIA [None]
  - CARDIAC VALVE DISEASE [None]
  - PNEUMONIA [None]
  - PYREXIA [None]
  - DYSPNOEA [None]
  - SEPSIS [None]
  - MENIERE'S DISEASE [None]
